FAERS Safety Report 8973624 (Version 2)
Quarter: 2017Q1

REPORT INFORMATION
  Report Type: Report from Study
  Country: US (occurrence: US)
  Receive Date: 20121218
  Receipt Date: 20170215
  Transmission Date: 20170429
  Serious: Yes (Other)
  Sender: FDA-Public Use
  Company Number: US-CELGENEUS-163-21880-12120922

PATIENT

DRUGS (6)
  1. REVLIMID [Suspect]
     Active Substance: LENALIDOMIDE
     Indication: PLASMA CELL MYELOMA
     Route: 048
  2. DEXAMETHASONE. [Suspect]
     Active Substance: DEXAMETHASONE
     Indication: RENAL FAILURE
  3. REVLIMID [Suspect]
     Active Substance: LENALIDOMIDE
     Dosage: 10 MILLIGRAM
     Route: 048
  4. DEXAMETHASONE. [Suspect]
     Active Substance: DEXAMETHASONE
     Indication: PLASMA CELL MYELOMA
     Dosage: 40 MILLIGRAM
     Route: 048
  5. REVLIMID [Suspect]
     Active Substance: LENALIDOMIDE
     Indication: RENAL FAILURE
     Dosage: 25 MILLIGRAM
     Route: 048
  6. ASPIRIN. [Concomitant]
     Active Substance: ASPIRIN
     Indication: PROPHYLAXIS
     Dosage: 81MG-325MG
     Route: 065

REACTIONS (15)
  - Neutropenia [Unknown]
  - Pneumonia [Unknown]
  - Hyperglycaemia [Unknown]
  - Fatigue [Unknown]
  - Otitis media [Unknown]
  - Hiccups [Unknown]
  - Constipation [Unknown]
  - Hypocalcaemia [Unknown]
  - Infection [Unknown]
  - Anaemia [Unknown]
  - Diarrhoea [Unknown]
  - Hyponatraemia [Unknown]
  - Dizziness [Unknown]
  - Thrombocytopenia [Unknown]
  - Tremor [Unknown]
